FAERS Safety Report 9293569 (Version 1)
Quarter: 2013Q2

REPORT INFORMATION
  Report Type: Spontaneous
  Country: RO (occurrence: RO)
  Receive Date: 20130516
  Receipt Date: 20130516
  Transmission Date: 20140414
  Serious: Yes (Hospitalization)
  Sender: FDA-Public Use
  Company Number: RO-GLAXOSMITHKLINE-B0892271A

PATIENT
  Age: 36 Year
  Sex: Female

DRUGS (1)
  1. REVOLADE [Suspect]
     Indication: IDIOPATHIC THROMBOCYTOPENIC PURPURA
     Dosage: 25MG PER DAY
     Route: 065
     Dates: start: 201302, end: 20130408

REACTIONS (4)
  - Transverse sinus thrombosis [Recovered/Resolved]
  - Intracranial venous sinus thrombosis [Recovered/Resolved]
  - Headache [Recovering/Resolving]
  - Intracranial pressure increased [Recovering/Resolving]
